FAERS Safety Report 4570712-8 (Version None)
Quarter: 2005Q1

REPORT INFORMATION
  Report Type: 
  Country: None (occurrence: None)
  Receive Date: 20050202
  Receipt Date: 20050120
  Transmission Date: 20050727
  Serious: Yes (Death, Hospitalization)
  Sender: FDA-Public Use
  Company Number: EWC050142289

PATIENT
  Age: 84 Year
  Sex: Male
  Weight: 70 kg

DRUGS (5)
  1. ZYPREXA [Suspect]
     Indication: HALLUCINATION, VISUAL
     Dosage: 5 MG/1 DAY
     Dates: start: 20041202, end: 20041224
  2. PROLOPA [Concomitant]
  3. DEPAKENE [Concomitant]
  4. DIPHANTOINE (PHEYTOIN SODIUM) [Concomitant]
  5. BETOPTIC [Concomitant]

REACTIONS (2)
  - LEUKOPENIA [None]
  - SEPTIC SHOCK [None]
